FAERS Safety Report 25988419 (Version 2)
Quarter: 2025Q4

REPORT INFORMATION
  Report Type: Spontaneous
  Country: JP (occurrence: JP)
  Receive Date: 20251103
  Receipt Date: 20251203
  Transmission Date: 20260117
  Serious: Yes (Other)
  Sender: TAKEDA
  Company Number: JP-TAKEDA-2025TUS096071

PATIENT
  Age: 15 Year
  Sex: Female

DRUGS (4)
  1. LIALDA [Suspect]
     Active Substance: MESALAMINE
     Indication: Colitis ulcerative
     Dosage: 4800 MILLIGRAM, QD
  2. BUDESONIDE [Suspect]
     Active Substance: BUDESONIDE
     Indication: Colitis ulcerative
     Dosage: 9 MILLIGRAM, QD
  3. BUDESONIDE [Suspect]
     Active Substance: BUDESONIDE
     Dosage: 9 MILLIGRAM, QD
  4. CAROTEGRAST METHYL [Concomitant]
     Active Substance: CAROTEGRAST METHYL
     Indication: Colitis ulcerative
     Dosage: 2880 MILLIGRAM, QD

REACTIONS (8)
  - Haematochezia [Unknown]
  - Colitis ulcerative [Unknown]
  - Drug ineffective [Unknown]
  - Abdominal pain lower [Unknown]
  - Decreased appetite [Unknown]
  - Acne [Unknown]
  - Diarrhoea [Unknown]
  - Abdominal pain [Unknown]
